FAERS Safety Report 23984361 (Version 3)
Quarter: 2025Q3

REPORT INFORMATION
  Report Type: Spontaneous
  Country: JP (occurrence: JP)
  Receive Date: 20240618
  Receipt Date: 20250704
  Transmission Date: 20251020
  Serious: Yes (Other)
  Sender: GENMAB
  Company Number: JP-GENMAB-2024-02024

PATIENT
  Age: 77 Year
  Sex: Male

DRUGS (7)
  1. EPKINLY [Suspect]
     Active Substance: EPCORITAMAB-BYSP
     Indication: Diffuse large B-cell lymphoma refractory
     Route: 065
     Dates: start: 20240326, end: 20240326
  2. EPKINLY [Suspect]
     Active Substance: EPCORITAMAB-BYSP
     Route: 065
     Dates: start: 202404, end: 202404
  3. EPKINLY [Suspect]
     Active Substance: EPCORITAMAB-BYSP
     Route: 065
     Dates: start: 20240410, end: 2024
  4. PREDONINE [Concomitant]
     Active Substance: PREDNISOLONE
     Indication: Prophylaxis
     Dates: start: 20240326, end: 2024
  5. DIPHENHYDRAMINE HYDROCHLORIDE [Concomitant]
     Active Substance: DIPHENHYDRAMINE HYDROCHLORIDE
     Indication: Prophylaxis
     Dates: start: 20240326, end: 2024
  6. ACETAMINOPHEN [Concomitant]
     Active Substance: ACETAMINOPHEN
     Indication: Prophylaxis
     Dates: start: 20240326, end: 2024
  7. DEXTROSE\SODIUM CHLORIDE\SODIUM LACTATE [Concomitant]
     Active Substance: DEXTROSE\SODIUM CHLORIDE\SODIUM LACTATE
     Indication: Prophylaxis
     Dates: start: 20240326, end: 2024

REACTIONS (3)
  - Cytokine release syndrome [Recovered/Resolved]
  - Cytokine release syndrome [Recovered/Resolved]
  - Diffuse large B-cell lymphoma refractory [Unknown]

NARRATIVE: CASE EVENT DATE: 20240101
